FAERS Safety Report 8582346-9 (Version None)
Quarter: 2012Q2

REPORT INFORMATION
  Report Type: 
  Country: None (occurrence: None)
  Receive Date: 20120423
  Receipt Date: 20100913
  Transmission Date: 20120825
  Serious: Yes (Hospitalization)
  Sender: FDA-Public Use
  Company Number: PHHY2010US41192

PATIENT
  Age: 82 Year
  Sex: Male
  Weight: 67.1 kg

DRUGS (5)
  1. BLOOD TRANSFUSION, AUXILIARY PRODUCTS (NO INGREDIENTS/SUBSTANCES) [Concomitant]
  2. EXJADE [Suspect]
     Indication: IRON OVERLOAD
     Dosage: 1500 MG, QD, ORAL ; 2000 MG, QD, ORAL
     Route: 048
     Dates: start: 20100503
  3. EXJADE [Suspect]
     Indication: LYMPHATIC SYSTEM NEOPLASM
     Dosage: 1500 MG, QD, ORAL ; 2000 MG, QD, ORAL
     Route: 048
     Dates: start: 20100503
  4. EXJADE [Suspect]
     Indication: IRON OVERLOAD
     Dosage: 1500 MG, QD, ORAL ; 2000 MG, QD, ORAL
     Route: 048
     Dates: start: 20100505
  5. EXJADE [Suspect]
     Indication: LYMPHATIC SYSTEM NEOPLASM
     Dosage: 1500 MG, QD, ORAL ; 2000 MG, QD, ORAL
     Route: 048
     Dates: start: 20100505

REACTIONS (3)
  - PYREXIA [None]
  - DIARRHOEA [None]
  - VISION BLURRED [None]
